FAERS Safety Report 5096068-2 (Version None)
Quarter: 2006Q3

REPORT INFORMATION
  Report Type: 
  Country: None (occurrence: None)
  Receive Date: 20060731
  Receipt Date: 20060429
  Transmission Date: 20061208
  Serious: No
  Sender: FDA-Public Use
  Company Number: 2006PV013081

PATIENT
  Age: 39 Year
  Sex: Female
  Weight: 74.3899 kg

DRUGS (3)
  1. BYETTA [Suspect]
     Indication: GLUCOSE TOLERANCE IMPAIRED
     Dosage: 5 MCG; BID; SC
     Route: 058
     Dates: start: 20060401
  2. BYETTA [Suspect]
     Indication: INSULIN RESISTANCE
     Dosage: 5 MCG; BID; SC
     Route: 058
     Dates: start: 20060401
  3. ORTHO TRI-CYCLEN LO [Concomitant]

REACTIONS (4)
  - CONSTIPATION [None]
  - DECREASED APPETITE [None]
  - OLIGOMENORRHOEA [None]
  - WEIGHT DECREASED [None]
